FAERS Safety Report 8660896 (Version 2)
Quarter: 2013Q4

REPORT INFORMATION
  Report Type: Spontaneous
  Country: US (occurrence: US)
  Receive Date: 20120711
  Receipt Date: 20131101
  Transmission Date: 20140711
  Serious: No
  Sender: FDA-Public Use
  Company Number: US-009507513-1206USA05421

PATIENT
  Age: 66 Year
  Sex: Male

DRUGS (11)
  1. JANUVIA [Suspect]
     Indication: DIVERTICULITIS
     Dosage: 100 MG, QD
     Route: 048
     Dates: start: 2008
  2. METFORMIN [Concomitant]
     Dosage: 1000 MG, UNK
  3. GLIMEPIRIDE [Concomitant]
     Dosage: 2 MG, UNK
  4. METOPROLOL [Concomitant]
     Dosage: 25 MG, UNK
  5. ACTOS [Concomitant]
     Dosage: 30 MG, PM
  6. FINASTERIDE [Concomitant]
     Dosage: 5 MG, UNK
  7. UROXATRAL [Concomitant]
  8. LORAZEPAM [Concomitant]
     Dosage: 1 MG, UNK
  9. ALLOPURINOL [Concomitant]
     Dosage: 300 MG, UNK
  10. FLAGYL [Concomitant]
     Indication: DIVERTICULITIS
     Dates: end: 20120622
  11. LANTUS [Concomitant]

REACTIONS (3)
  - Muscle spasms [Not Recovered/Not Resolved]
  - Diarrhoea [Not Recovered/Not Resolved]
  - Medication residue present [Unknown]
